FAERS Safety Report 10081454 (Version 3)
Quarter: 2014Q2

REPORT INFORMATION
  Report Type: Report from Study
  Country: FR (occurrence: FR)
  Receive Date: 20140416
  Receipt Date: 20140507
  Transmission Date: 20141212
  Serious: Yes (Hospitalization)
  Sender: FDA-Public Use
  Company Number: PHHO2012FR013807

PATIENT
  Sex: 0

DRUGS (3)
  1. RAD 666 / RAD 001A [Suspect]
     Indication: TRANSPLANT REJECTION
     Dosage: 5 MG, QD
     Route: 002
     Dates: start: 20120222
  2. CELLCEPT [Suspect]
     Indication: TRANSPLANT REJECTION
     Dosage: 2 G, QD
     Route: 002
     Dates: start: 20120216
  3. CORTANCYL [Suspect]
     Indication: RENAL TRANSPLANT
     Dosage: 10 MG, QD
     Route: 002
     Dates: start: 20120222

REACTIONS (3)
  - Blood creatinine increased [Recovered/Resolved]
  - Lymphocele [Recovering/Resolving]
  - Incisional hernia [Recovered/Resolved]
